FAERS Safety Report 17266825 (Version 1)
Quarter: 2020Q1

REPORT INFORMATION
  Report Type: Spontaneous
  Country: US (occurrence: US)
  Receive Date: 20200113
  Receipt Date: 20200113
  Transmission Date: 20200409
  Serious: Yes (Life-Threatening, Hospitalization, Disabling)
  Sender: FDA-Public Use
  Company Number: None

PATIENT
  Age: 50 Year
  Sex: Female
  Weight: 112.5 kg

DRUGS (8)
  1. SYNJARDY [Suspect]
     Active Substance: EMPAGLIFLOZIN\METFORMIN HYDROCHLORIDE
     Indication: DIABETES MELLITUS
     Route: 048
     Dates: start: 20170701, end: 20180801
  2. METFORMIN [Concomitant]
     Active Substance: METFORMIN HYDROCHLORIDE
  3. INSULIN 70/30 [Concomitant]
     Active Substance: INSULIN HUMAN
  4. INSULIN 4 [Concomitant]
  5. ZYRTEC [Concomitant]
     Active Substance: CETIRIZINE HYDROCHLORIDE
  6. PROBIOTIC [Concomitant]
     Active Substance: PROBIOTICS NOS
  7. METEPROLOL [Concomitant]
  8. LISINIPRIL WITH HZT [Concomitant]

REACTIONS (5)
  - Scar [None]
  - Fournier^s gangrene [None]
  - Wound [None]
  - Septic shock [None]
  - Vulval disorder [None]

NARRATIVE: CASE EVENT DATE: 20191119
